FAERS Safety Report 12985592 (Version 1)
Quarter: 2016Q4

REPORT INFORMATION
  Report Type: Report from Study
  Country: US (occurrence: US)
  Receive Date: 20161130
  Receipt Date: 20161130
  Transmission Date: 20170207
  Serious: Yes (Hospitalization, Other)
  Sender: FDA-Public Use
  Company Number: US-AMGEN-USASL2016166870

PATIENT
  Age: 66 Year
  Sex: Female

DRUGS (4)
  1. PROLIA [Suspect]
     Active Substance: DENOSUMAB
     Indication: OSTEOPOROSIS POSTMENOPAUSAL
     Dosage: UNK UNK, Q6MO
     Route: 065
     Dates: start: 2014
  2. CALCIUM [Concomitant]
     Active Substance: CALCIUM
  3. LEXAPRO [Concomitant]
     Active Substance: ESCITALOPRAM OXALATE
     Indication: DEPRESSION
  4. VITAMIN D [Concomitant]
     Active Substance: CHOLECALCIFEROL

REACTIONS (2)
  - Thrombosis [Recovered/Resolved]
  - Pulmonary embolism [Not Recovered/Not Resolved]

NARRATIVE: CASE EVENT DATE: 201601
